FAERS Safety Report 5007417-5 (Version None)
Quarter: 2006Q2

REPORT INFORMATION
  Report Type: 
  Country: None (occurrence: None)
  Receive Date: 20060518
  Receipt Date: 20060518
  Transmission Date: 20061013
  Serious: No
  Sender: FDA-Public Use
  Company Number: None

PATIENT
  Sex: Male
  Weight: 99.7913 kg

DRUGS (1)
  1. CIPROFLOXACIN 500 MG DR REDDY/BAYER [Suspect]
     Indication: URINARY TRACT INFECTION
     Dosage: 500 MG  2 X PER DAY PO
     Route: 048
     Dates: start: 20060212, end: 20060222

REACTIONS (5)
  - INFECTION [None]
  - PAIN [None]
  - PAIN IN EXTREMITY [None]
  - PLANTAR FASCIITIS [None]
  - TENDONITIS [None]
